FAERS Safety Report 16668432 (Version 1)
Quarter: 2019Q3

REPORT INFORMATION
  Report Type: Spontaneous
  Country: US (occurrence: US)
  Receive Date: 20190803
  Receipt Date: 20190803
  Transmission Date: 20191004
  Serious: Yes (Disabling)
  Sender: FDA-Public Use
  Company Number: None

PATIENT
  Age: 58 Year
  Sex: Female
  Weight: 63 kg

DRUGS (2)
  1. TOPICAL STEROID CREAMS [Suspect]
     Active Substance: UNSPECIFIED INGREDIENT
  2. PREDNISONE. [Suspect]
     Active Substance: PREDNISONE
     Indication: DERMATITIS

REACTIONS (8)
  - Steroid withdrawal syndrome [None]
  - Insomnia [None]
  - Allergy to chemicals [None]
  - Pruritus generalised [None]
  - Depression [None]
  - Food allergy [None]
  - Adrenal disorder [None]
  - Rash pruritic [None]

NARRATIVE: CASE EVENT DATE: 20150401
